FAERS Safety Report 7281417-7 (Version None)
Quarter: 2011Q1

REPORT INFORMATION
  Report Type: 
  Country: None (occurrence: None)
  Receive Date: 20110208
  Receipt Date: 20110127
  Transmission Date: 20110831
  Serious: Yes (Death, Hospitalization, Other)
  Sender: FDA-Public Use
  Company Number: IN-ELI_LILLY_AND_COMPANY-IN201101007129

PATIENT
  Age: 72 Year
  Sex: Female

DRUGS (1)
  1. XIGRIS [Suspect]
     Indication: SEPSIS
     Dosage: UNK, UNKNOWN
     Dates: start: 20110126

REACTIONS (5)
  - SEPSIS [None]
  - TACHYCARDIA [None]
  - URINARY TRACT INFECTION [None]
  - MULTI-ORGAN FAILURE [None]
  - GENERAL PHYSICAL HEALTH DETERIORATION [None]
